FAERS Safety Report 9276060 (Version 3)
Quarter: 2013Q2

REPORT INFORMATION
  Report Type: Spontaneous
  Country: ES (occurrence: ES)
  Receive Date: 20130507
  Receipt Date: 20130517
  Transmission Date: 20140414
  Serious: Yes (Other)
  Sender: FDA-Public Use
  Company Number: ES-JNJFOC-20130501158

PATIENT
  Age: 53 Year
  Sex: Male

DRUGS (9)
  1. DUROGESIC [Suspect]
     Indication: OSTEOARTHRITIS
     Route: 062
     Dates: start: 2013, end: 20130402
  2. NEURONTIN [Suspect]
     Indication: OSTEOARTHRITIS
     Route: 048
     Dates: start: 2013, end: 20130402
  3. OMEPRAZOLE [Concomitant]
     Indication: PROPHYLAXIS
     Route: 048
  4. PARACETAMOL [Concomitant]
     Indication: PRODUCT USED FOR UNKNOWN INDICATION
     Route: 048
  5. KETAZOLAM [Concomitant]
     Indication: PRODUCT USED FOR UNKNOWN INDICATION
     Route: 048
     Dates: start: 2013
  6. CEREBREX [Concomitant]
     Indication: OSTEOARTHRITIS
     Route: 048
  7. LYRICA [Concomitant]
     Indication: PRODUCT USED FOR UNKNOWN INDICATION
     Route: 048
  8. ORFIDAL [Concomitant]
     Indication: PRODUCT USED FOR UNKNOWN INDICATION
     Route: 048
  9. TARGIN [Concomitant]
     Indication: OSTEOARTHRITIS
     Route: 048

REACTIONS (2)
  - Ejaculation delayed [Recovered/Resolved]
  - Erectile dysfunction [Unknown]
